FAERS Safety Report 17236444 (Version 6)
Quarter: 2022Q1

REPORT INFORMATION
  Report Type: Other
  Country: CN (occurrence: CN)
  Receive Date: 20200106
  Receipt Date: 20220121
  Transmission Date: 20220423
  Serious: Yes (Other)
  Sender: FDA-Public Use
  Company Number: CN-002147023-NVSC2019CN083384

PATIENT
  Age: 60 Year
  Sex: Male

DRUGS (5)
  1. RANIBIZUMAB [Suspect]
     Active Substance: RANIBIZUMAB
     Indication: Neovascular age-related macular degeneration
     Dosage: 0.05 OT
     Route: 065
     Dates: start: 20191203
  2. RANIBIZUMAB [Suspect]
     Active Substance: RANIBIZUMAB
     Dosage: 0.05 OT
     Route: 065
     Dates: start: 20191205
  3. RANIBIZUMAB [Suspect]
     Active Substance: RANIBIZUMAB
     Dosage: UNK
     Route: 065
  4. JOLETHIN [Concomitant]
     Active Substance: JOLETHIN
  5. PIRENOXINE OPHTHALMIC SOLUTION [Concomitant]

REACTIONS (2)
  - Retinal haemorrhage [Unknown]
  - Conjunctival haemorrhage [Recovered/Resolved]

NARRATIVE: CASE EVENT DATE: 20191204
